FAERS Safety Report 4930246-5 (Version None)
Quarter: 2006Q1

REPORT INFORMATION
  Report Type: 
  Country: None (occurrence: None)
  Receive Date: 20060302
  Receipt Date: 20051207
  Transmission Date: 20060701
  Serious: Yes (Other)
  Sender: FDA-Public Use
  Company Number: PHEH2005US13310

PATIENT
  Age: 75 Year
  Sex: Female

DRUGS (5)
  1. VIVELLE-DOT [Suspect]
     Indication: HORMONE REPLACEMENT THERAPY
     Dosage: 0.1 MG/DAY, TWICE WEEKLY
     Route: 062
     Dates: start: 20050801
  2. SYNTHROID [Concomitant]
  3. ROGAINE [Concomitant]
  4. ZOCOR [Concomitant]
  5. AMITRIPTYLINE HCL [Concomitant]

REACTIONS (5)
  - BLOOD PRESSURE INCREASED [None]
  - EYE HAEMORRHAGE [None]
  - LASER THERAPY [None]
  - RETINAL HAEMORRHAGE [None]
  - VISION BLURRED [None]
